FAERS Safety Report 12199392 (Version 1)
Quarter: 2016Q1

REPORT INFORMATION
  Report Type: Spontaneous
  Country: US (occurrence: US)
  Receive Date: 20160322
  Receipt Date: 20160322
  Transmission Date: 20160526
  Serious: No
  Sender: FDA-Public Use
  Company Number: US-PFIZER INC-2016148114

PATIENT
  Age: 70 Year
  Sex: Male
  Weight: 136 kg

DRUGS (9)
  1. HYDRALAZINE [Concomitant]
     Active Substance: HYDRALAZINE HYDROCHLORIDE
  2. NOVOLOG [Concomitant]
     Active Substance: INSULIN ASPART
  3. LOSARTAN. [Concomitant]
     Active Substance: LOSARTAN
  4. LEVEMIR [Concomitant]
     Active Substance: INSULIN DETEMIR
  5. SIMVASTATIN. [Concomitant]
     Active Substance: SIMVASTATIN
  6. CLONIDINE. [Concomitant]
     Active Substance: CLONIDINE
  7. LYRICA [Suspect]
     Active Substance: PREGABALIN
     Indication: DIABETIC NEUROPATHY
     Dosage: 100 MG, 4X/DAY
  8. LABETALOL HCL [Concomitant]
     Active Substance: LABETALOL HYDROCHLORIDE
  9. LYRICA [Suspect]
     Active Substance: PREGABALIN
     Dosage: 100 MG, 1X/DAY

REACTIONS (3)
  - Intentional product misuse [Unknown]
  - Burning sensation [Unknown]
  - Pain [Unknown]
